FAERS Safety Report 8775196 (Version 2)
Quarter: 2012Q4

REPORT INFORMATION
  Report Type: 
  Country: US (occurrence: US)
  Receive Date: 20120910
  Receipt Date: 20121022
  Transmission Date: 20130627
  Serious: Yes (Hospitalization)
  Sender: FDA-Public Use
  Company Number: US-PFIZER INC-2012218574

PATIENT
  Age: 46 Year
  Sex: Female
  Weight: 40 kg

DRUGS (3)
  1. LEVETIRACETAM [Suspect]
     Indication: CONVULSION
     Dosage: UNK
     Route: 065
  2. PHENYTOIN [Interacting]
     Indication: CONVULSION
     Dosage: UNK
     Route: 065
  3. PHENOBARBITAL [Interacting]
     Indication: CONVULSION
     Dosage: UNK
     Route: 065

REACTIONS (3)
  - Drug interaction [Recovered/Resolved]
  - Hypothyroidism [Recovered/Resolved]
  - Hormone level abnormal [Unknown]
